FAERS Safety Report 4700281-0 (Version None)
Quarter: 2005Q2

REPORT INFORMATION
  Report Type: 
  Country: None (occurrence: None)
  Receive Date: 20050627
  Receipt Date: 20050427
  Transmission Date: 20051028
  Serious: Yes (Other)
  Sender: FDA-Public Use
  Company Number: PHEH2005US04870

PATIENT
  Age: 67 Year
  Sex: Female
  Weight: 69 kg

DRUGS (4)
  1. PREDNISONE TAB [Concomitant]
     Indication: TEMPORAL ARTERITIS
     Dates: start: 20040501, end: 20050101
  2. STEROIDS NOS [Concomitant]
  3. CLOBETASOL [Concomitant]
  4. ELIDEL [Suspect]
     Indication: ECZEMA
     Dosage: UNK, BID
     Route: 061
     Dates: start: 20040301, end: 20041201

REACTIONS (3)
  - MARROW HYPERPLASIA [None]
  - MYCOSIS FUNGOIDES [None]
  - NORMOCHROMIC NORMOCYTIC ANAEMIA [None]
